FAERS Safety Report 17356230 (Version 1)
Quarter: 2020Q1

REPORT INFORMATION
  Report Type: Spontaneous
  Country: None (occurrence: US)
  Receive Date: 20200131
  Receipt Date: 20200131
  Transmission Date: 20200409
  Serious: Yes (Life-Threatening, Hospitalization)
  Sender: FDA-Public Use
  Company Number: US-I-HEALTH, INC.-2079680

PATIENT
  Age: 76 Year
  Sex: Female
  Weight: 68.18 kg

DRUGS (1)
  1. AZO URINARY PAIN RELIEF MAXIMUM STRENGTH [Suspect]
     Active Substance: PHENAZOPYRIDINE HYDROCHLORIDE
     Indication: URINARY TRACT INFECTION
     Route: 048

REACTIONS (1)
  - Sepsis [Recovering/Resolving]
